FAERS Safety Report 24465954 (Version 1)
Quarter: 2024Q4

REPORT INFORMATION
  Report Type: Report from Study
  Country: US (occurrence: US)
  Receive Date: 20241018
  Receipt Date: 20241018
  Transmission Date: 20250114
  Serious: No
  Sender: ROCHE
  Company Number: US-ROCHE-3519303

PATIENT
  Sex: Female

DRUGS (2)
  1. XOLAIR [Suspect]
     Active Substance: OMALIZUMAB
     Indication: Product used for unknown indication
     Route: 065
  2. MONTELUKAST [Concomitant]
     Active Substance: MONTELUKAST

REACTIONS (12)
  - Cough [Unknown]
  - Oropharyngeal pain [Unknown]
  - Anxiety [Unknown]
  - Dysphonia [Unknown]
  - Oral discomfort [Unknown]
  - Lip swelling [Unknown]
  - Urticaria [Unknown]
  - Chest pain [Unknown]
  - Wheezing [Unknown]
  - Peripheral swelling [Unknown]
  - Swelling face [Unknown]
  - Swelling of eyelid [Unknown]
